FAERS Safety Report 5305288-0 (Version None)
Quarter: 2007Q2

REPORT INFORMATION
  Report Type: 
  Country: None (occurrence: None)
  Receive Date: 20070424
  Receipt Date: 20070413
  Transmission Date: 20071010
  Serious: Yes (Other)
  Sender: FDA-Public Use
  Company Number: PHBS2005IT15087

PATIENT
  Age: 56 Year
  Sex: Female

DRUGS (7)
  1. CYCLOPHOSPHAMIDE + 5-FU + METHOTREXATE [Concomitant]
     Route: 065
     Dates: start: 20030201, end: 20030801
  2. EPIRUBICIN [Concomitant]
     Route: 065
     Dates: start: 20000301
  3. DOCETAXEL [Concomitant]
     Route: 065
     Dates: start: 20000301
  4. VINORELBINE [Concomitant]
     Route: 065
     Dates: start: 20031001
  5. FLUOROURACIL [Concomitant]
     Route: 065
     Dates: start: 20031001
  6. PAMIDRONATE DISODIUM [Suspect]
     Indication: METASTASES TO BONE
     Dosage: 90 MG, QMO
     Route: 042
     Dates: start: 20021101, end: 20030901
  7. ZOLEDRONATE [Suspect]
     Indication: METASTASES TO BONE
     Dosage: 4 MG, QMO
     Route: 042
     Dates: start: 20030901

REACTIONS (11)
  - BONE DEBRIDEMENT [None]
  - BONE DISORDER [None]
  - EAR PAIN [None]
  - HAEMORRHAGE [None]
  - LOCAL ANAESTHESIA [None]
  - OSTEITIS [None]
  - OSTEONECROSIS [None]
  - PAIN [None]
  - PARAESTHESIA ORAL [None]
  - SURGERY [None]
  - ULCER [None]
